FAERS Safety Report 9282628 (Version 3)
Quarter: 2018Q4

REPORT INFORMATION
  Report Type: Spontaneous
  Country: JP (occurrence: JP)
  Receive Date: 20130510
  Receipt Date: 20181016
  Transmission Date: 20190205
  Serious: Yes (Hospitalization, Other)
  Sender: FDA-Public Use
  Company Number: PHHY2013JP043813

PATIENT
  Age: 69 Year
  Sex: Female
  Weight: 56 kg

DRUGS (7)
  1. COMTAN [Suspect]
     Active Substance: ENTACAPONE
     Indication: PARKINSON^S DISEASE
     Dosage: 100 MG, TID
     Route: 048
     Dates: start: 20130123
  2. NEODOPASTON [Suspect]
     Active Substance: CARBIDOPA\LEVODOPA
     Indication: PARKINSON^S DISEASE
     Dosage: 300 MG, QD
     Route: 048
     Dates: start: 20121219, end: 20121225
  3. NEODOPASTON [Suspect]
     Active Substance: CARBIDOPA\LEVODOPA
     Dosage: 750 MG, QD
     Route: 048
     Dates: start: 20130109
  4. FP [Suspect]
     Active Substance: SELEGILINE HYDROCHLORIDE
     Indication: PARKINSON^S DISEASE
     Dosage: 5 MG, DAILY
     Route: 048
     Dates: start: 20121226
  5. REQUIP [Suspect]
     Active Substance: ROPINIROLE HYDROCHLORIDE
     Dosage: 8 MG, QD
     Route: 048
     Dates: start: 20130123, end: 20130405
  6. NEODOPASTON [Suspect]
     Active Substance: CARBIDOPA\LEVODOPA
     Dosage: 375 MG, QD
     Route: 048
     Dates: start: 20121226, end: 20130108
  7. REQUIP [Suspect]
     Active Substance: ROPINIROLE HYDROCHLORIDE
     Indication: PARKINSON^S DISEASE
     Dosage: 2 MG, QD
     Route: 048
     Dates: start: 20121205, end: 20130122

REACTIONS (9)
  - Hallucination [Not Recovered/Not Resolved]
  - Fall [Unknown]
  - Gait disturbance [Unknown]
  - Tooth disorder [Unknown]
  - Concomitant disease progression [Unknown]
  - Mental disorder [Not Recovered/Not Resolved]
  - Decubitus ulcer [Unknown]
  - Scar [Unknown]
  - Infection [Unknown]

NARRATIVE: CASE EVENT DATE: 20130123
